FAERS Safety Report 10385001 (Version 2)
Quarter: 2014Q4

REPORT INFORMATION
  Report Type: Spontaneous
  Country: JP (occurrence: JP)
  Receive Date: 20140814
  Receipt Date: 20141029
  Transmission Date: 20150528
  Serious: Yes (Death)
  Sender: FDA-Public Use
  Company Number: PHHY2008JP045260

PATIENT
  Age: 85 Year
  Sex: Female

DRUGS (1)
  1. GLIVEC [Suspect]
     Active Substance: IMATINIB MESYLATE
     Indication: CHRONIC MYELOID LEUKAEMIA
     Dosage: UNK
     Route: 065
     Dates: start: 20081101

REACTIONS (2)
  - Gallbladder cancer metastatic [Fatal]
  - Second primary malignancy [Fatal]

NARRATIVE: CASE EVENT DATE: 200911
